FAERS Safety Report 9377107 (Version 3)
Quarter: 2013Q3

REPORT INFORMATION
  Report Type: Spontaneous
  Country: ZA (occurrence: ZA)
  Receive Date: 20130701
  Receipt Date: 20130717
  Transmission Date: 20140515
  Serious: Yes (Hospitalization)
  Sender: FDA-Public Use
  Company Number: ZA-BAYER-2013-077648

PATIENT
  Age: 39 Year
  Sex: Female
  Weight: 95 kg

DRUGS (5)
  1. MIRENA [Suspect]
     Indication: CONTRACEPTION
     Dosage: 20 MCG/24HR, CONT
     Route: 015
     Dates: start: 20130517
  2. MIRENA [Suspect]
     Indication: MENORRHAGIA
  3. YAZ [Suspect]
     Indication: DYSMENORRHOEA
     Dosage: UNK
     Dates: start: 200908, end: 20130605
  4. GLUCOPHAGE XR [Concomitant]
     Dosage: 1000 MG, UNK
  5. SIMVASTATIN [Concomitant]

REACTIONS (4)
  - Pulmonary embolism [None]
  - Dyspnoea [None]
  - Chest pain [None]
  - Chest discomfort [None]
